FAERS Safety Report 23745405 (Version 4)
Quarter: 2024Q3

REPORT INFORMATION
  Report Type: Spontaneous
  Country: US (occurrence: US)
  Receive Date: 20240416
  Receipt Date: 20240918
  Transmission Date: 20241017
  Serious: Yes (Hospitalization, Other)
  Sender: BRISTOL MYERS SQUIBB
  Company Number: US-BRISTOL-MYERS SQUIBB COMPANY-2024-056926

PATIENT
  Age: 80 Year
  Sex: Male

DRUGS (1)
  1. REVLIMID [Suspect]
     Active Substance: LENALIDOMIDE
     Indication: Plasma cell myeloma
     Dosage: FREQUENCY: QD FOR 21 DAYS ON 7 DAYS OFF
     Route: 048

REACTIONS (6)
  - Cardiac disorder [Unknown]
  - Conduction disorder [Unknown]
  - Pleural effusion [Unknown]
  - Post procedural haemorrhage [Unknown]
  - Atrial fibrillation [Unknown]
  - Sluggishness [Unknown]
